FAERS Safety Report 8477814-4 (Version None)
Quarter: 2012Q2

REPORT INFORMATION
  Report Type: 
  Country: None (occurrence: None)
  Receive Date: 20120629
  Receipt Date: 20120619
  Transmission Date: 20120825
  Serious: Yes (Hospitalization)
  Sender: FDA-Public Use
  Company Number: US-BAYER-2012-062356

PATIENT
  Age: 28 Year
  Sex: Female
  Weight: 131.3 kg

DRUGS (6)
  1. IMODIUM [Concomitant]
  2. ACETAMINOPHEN W/ CODEINE [Concomitant]
  3. GUAIFENESIN [Concomitant]
  4. YAZ [Suspect]
  5. YASMIN [Suspect]
     Indication: CONTRACEPTION
  6. ERYTHROMYCIN [Concomitant]

REACTIONS (3)
  - PULMONARY INFARCTION [None]
  - PULMONARY EMBOLISM [None]
  - DEEP VEIN THROMBOSIS [None]
